FAERS Safety Report 8900265 (Version 1)
Quarter: 2012Q4

REPORT INFORMATION
  Report Type: Report from Study
  Country: CA (occurrence: CA)
  Receive Date: 20121109
  Receipt Date: 20121109
  Transmission Date: 20130627
  Serious: Yes (Hospitalization)
  Sender: FDA-Public Use
  Company Number: CA-JNJFOC-20121100902

PATIENT
  Age: 54 Year
  Sex: Male
  Weight: 103 kg

DRUGS (11)
  1. REMICADE [Suspect]
     Indication: PYODERMA GANGRENOSUM
     Route: 042
     Dates: start: 20120209
  2. NOVOGESIC [Concomitant]
     Route: 048
  3. CALCITE [Concomitant]
     Route: 048
  4. GLICLAZIDE [Concomitant]
     Route: 065
  5. HYDROCHLOROTHIAZIDE [Concomitant]
     Route: 048
  6. ALL OTHER THERAPEUTICS [Concomitant]
     Route: 065
  7. OXAZEPAM [Concomitant]
     Route: 065
  8. VALSARTAN [Concomitant]
     Route: 065
  9. PREDNISONE [Concomitant]
     Route: 065
  10. VENTOLIN [Concomitant]
     Route: 065
  11. NASONEX [Concomitant]
     Route: 065

REACTIONS (1)
  - Myocardial infarction [Recovering/Resolving]
